FAERS Safety Report 9140886 (Version 5)
Quarter: 2014Q4

REPORT INFORMATION
  Report Type: Report from Study
  Country: JP (occurrence: JP)
  Receive Date: 20130305
  Receipt Date: 20141020
  Transmission Date: 20150529
  Serious: Yes (Other)
  Sender: FDA-Public Use
  Company Number: JP-GILEAD-2013-0071016

PATIENT
  Age: 34 Year
  Sex: Female
  Weight: 47 kg

DRUGS (11)
  1. PARIET [Concomitant]
     Active Substance: RABEPRAZOLE SODIUM
     Route: 048
  2. PREDNISOLONE. [Concomitant]
     Active Substance: PREDNISOLONE
     Indication: SCLEREMA
     Route: 048
  3. TRACLEER [Concomitant]
     Active Substance: BOSENTAN\BOSENTAN MONOHYDRATE
     Route: 048
  4. AMBRISENTAN [Suspect]
     Active Substance: AMBRISENTAN
     Dosage: 5 MG, QD
     Route: 048
     Dates: start: 20120405, end: 20120411
  5. CINAL [Concomitant]
     Active Substance: ASCORBIC ACID\CALCIUM PANTOTHENATE
     Route: 048
     Dates: start: 20120308
  6. ALLEGRA [Concomitant]
     Active Substance: FEXOFENADINE HYDROCHLORIDE
     Route: 048
     Dates: start: 20120209, end: 20120426
  7. FERROMIA                           /00023516/ [Concomitant]
     Active Substance: FERROUS CITRATE
     Route: 048
     Dates: start: 20120308, end: 20120718
  8. AMBRISENTAN [Suspect]
     Active Substance: AMBRISENTAN
     Indication: SCLEREMA
     Dosage: 7.5 MG, QD
     Route: 048
     Dates: start: 20120412, end: 20120919
  9. ADCIRCA [Concomitant]
     Active Substance: TADALAFIL
     Indication: SCLEREMA
     Dosage: UNK
     Route: 048
  10. BERASUS [Concomitant]
     Active Substance: BERAPROST SODIUM
     Indication: SCLEREMA
     Route: 048
     Dates: end: 20120426
  11. ONEALFA [Concomitant]
     Active Substance: ALFACALCIDOL
     Route: 048

REACTIONS (3)
  - Productive cough [Recovering/Resolving]
  - Cough [Recovering/Resolving]
  - Interstitial lung disease [Not Recovered/Not Resolved]

NARRATIVE: CASE EVENT DATE: 20120920
